FAERS Safety Report 9109256 (Version 4)
Quarter: 2013Q4

REPORT INFORMATION
  Report Type: Spontaneous
  Country: IE (occurrence: IE)
  Receive Date: 20130222
  Receipt Date: 20131011
  Transmission Date: 20140711
  Serious: Yes (Other)
  Sender: FDA-Public Use
  Company Number: IE-AMGEN-IRLSP2013011499

PATIENT
  Sex: Female

DRUGS (1)
  1. PROLIA [Suspect]
     Indication: OSTEOPOROSIS
     Dosage: UNK UNK, Q6MO
     Route: 065

REACTIONS (4)
  - Gingivitis [Not Recovered/Not Resolved]
  - Osteonecrosis of jaw [Unknown]
  - Procedural pain [Unknown]
  - Alveolar osteitis [Recovered/Resolved]
